FAERS Safety Report 6631537-2 (Version None)
Quarter: 2010Q1

REPORT INFORMATION
  Report Type: 
  Country: None (occurrence: None)
  Receive Date: 20100312
  Receipt Date: 20100305
  Transmission Date: 20100710
  Serious: Yes (Hospitalization, Other)
  Sender: FDA-Public Use
  Company Number: PHHY2010BR13511

PATIENT
  Sex: Male

DRUGS (1)
  1. STALEVO 100 [Suspect]
     Indication: TREMOR
     Dosage: 200/50/12.5 MG BID
     Dates: start: 20090901

REACTIONS (10)
  - ANAEMIA [None]
  - ASPIRATION BRONCHIAL [None]
  - BLOOD CHOLESTEROL INCREASED [None]
  - GASTROSTOMY [None]
  - INCREASED UPPER AIRWAY SECRETION [None]
  - PNEUMONIA [None]
  - PULMONARY EMBOLISM [None]
  - SALIVARY HYPERSECRETION [None]
  - TRACHEOSTOMY [None]
  - TREMOR [None]
